FAERS Safety Report 14908880 (Version 1)
Quarter: 2018Q2

REPORT INFORMATION
  Report Type: Spontaneous
  Country: US (occurrence: ZA)
  Receive Date: 20180517
  Receipt Date: 20180517
  Transmission Date: 20180711
  Serious: Yes (Death, Hospitalization)
  Sender: FDA-Public Use
  Company Number: ZA-JACOBUS PHARMACEUTICAL COMPANY, INC.-2047996

PATIENT
  Age: 34 Year
  Sex: Female

DRUGS (7)
  1. EMTRICITABINE [Concomitant]
     Active Substance: EMTRICITABINE
  2. PREDNISONE. [Concomitant]
     Active Substance: PREDNISONE
  3. TENOFOVIR DISOPROXIL FUMARATE. [Concomitant]
     Active Substance: TENOFOVIR DISOPROXIL FUMARATE
  4. PASER [Suspect]
     Active Substance: AMINOSALICYLIC ACID
     Dates: start: 20170709
  5. SULFAMETHOXAZOLE AND TRIMETHOPRIM [Concomitant]
     Active Substance: SULFAMETHOXAZOLE\TRIMETHOPRIM
  6. PYRIDOXINE HYDROCHLORIDE. [Concomitant]
     Active Substance: PYRIDOXINE HYDROCHLORIDE
  7. NEVIRAPINE. [Concomitant]
     Active Substance: NEVIRAPINE

REACTIONS (1)
  - Death [Fatal]
